FAERS Safety Report 10033157 (Version 2)
Quarter: 2014Q2

REPORT INFORMATION
  Report Type: Spontaneous
  Country: US (occurrence: US)
  Receive Date: 20140324
  Receipt Date: 20140401
  Transmission Date: 20141212
  Serious: Yes (Other)
  Sender: FDA-Public Use
  Company Number: US-BAXTER-2014BAX014467

PATIENT
  Sex: Male

DRUGS (5)
  1. DIANEAL LOW CALCIUM (ULTRABAG) [Suspect]
     Indication: PERITONEAL DIALYSIS
     Route: 033
     Dates: start: 201307
  2. DIANEAL LOW CALCIUM (ULTRABAG) [Suspect]
     Indication: PERITONEAL DIALYSIS
     Route: 033
     Dates: start: 201307, end: 20140316
  3. LANTUS INSULIN [Concomitant]
     Indication: DIABETES MELLITUS
     Dosage: 130 UNITS
     Route: 058
  4. LANTUS INSULIN [Concomitant]
     Dosage: 100 UNITS
     Route: 058
  5. NOVOLOG INSULIN [Concomitant]
     Indication: DIABETES MELLITUS
     Dosage: PER SLIDING SCALE
     Route: 058

REACTIONS (2)
  - Blood glucose increased [Recovering/Resolving]
  - Hypotension [Recovering/Resolving]
